FAERS Safety Report 13426182 (Version 1)
Quarter: 2017Q2

REPORT INFORMATION
  Report Type: Spontaneous
  Country: US (occurrence: US)
  Receive Date: 20170411
  Receipt Date: 20170411
  Transmission Date: 20170830
  Serious: Yes (Other)
  Sender: FDA-Public Use
  Company Number: US-JNJFOC-20170103928

PATIENT
  Age: 32 Year
  Sex: Male
  Weight: 68.95 kg

DRUGS (5)
  1. REMICADE [Suspect]
     Active Substance: INFLIXIMAB
     Indication: CROHN^S DISEASE
     Route: 042
     Dates: start: 20161230, end: 20161230
  2. ZOFRAN [Concomitant]
     Active Substance: ONDANSETRON HYDROCHLORIDE
     Dosage: EVERY 6-8 HOURS
     Route: 065
  3. REMICADE [Suspect]
     Active Substance: INFLIXIMAB
     Indication: CROHN^S DISEASE
     Route: 042
     Dates: start: 20160506
  4. LIALDA [Concomitant]
     Active Substance: MESALAMINE
     Route: 065
  5. MESALAMINE. [Concomitant]
     Active Substance: MESALAMINE
     Route: 065
     Dates: start: 20110517

REACTIONS (4)
  - Diarrhoea [Recovered/Resolved]
  - Infusion related reaction [Recovering/Resolving]
  - Abdominal pain upper [Unknown]
  - Drug hypersensitivity [Recovering/Resolving]

NARRATIVE: CASE EVENT DATE: 20161229
